FAERS Safety Report 22186521 (Version 1)
Quarter: 2023Q2

REPORT INFORMATION
  Report Type: Spontaneous
  Country: HR (occurrence: HR)
  Receive Date: 20230407
  Receipt Date: 20230407
  Transmission Date: 20230722
  Serious: Yes (Other)
  Sender: FDA-Public Use
  Company Number: HR-BAYER-2021A251437

PATIENT
  Age: 53 Year
  Sex: Male

DRUGS (11)
  1. RIVAROXABAN [Suspect]
     Active Substance: RIVAROXABAN
     Indication: Atrial fibrillation
     Dosage: XARELTO 20 MG,?UNK
     Route: 048
     Dates: start: 2015, end: 2018
  2. RIVAROXABAN [Suspect]
     Active Substance: RIVAROXABAN
     Dosage: UNK
     Route: 048
     Dates: start: 2020
  3. RIVAROXABAN [Suspect]
     Active Substance: RIVAROXABAN
     Dosage: XARELTO 15 MG?UNK
     Route: 048
     Dates: start: 2018, end: 202003
  4. TACROLIMUS [Concomitant]
     Active Substance: TACROLIMUS
  5. MYCOPHENOLIC ACID [Concomitant]
     Active Substance: MYCOPHENOLIC ACID
     Dosage: 5 MG
  6. BISOPROLOL [Concomitant]
     Active Substance: BISOPROLOL
  7. DILTIAZEM [Concomitant]
     Active Substance: DILTIAZEM
     Dosage: 60 MG, BID
  8. URAPIDIL [Concomitant]
     Active Substance: URAPIDIL
     Dosage: 60 MG, TID
  9. CLOPIDOGREL [Concomitant]
     Active Substance: CLOPIDOGREL BISULFATE
     Dosage: 5 MG, QD
  10. INSULIN ASPART [Concomitant]
     Active Substance: INSULIN ASPART
  11. ATORVASTATIN [Concomitant]
     Active Substance: ATORVASTATIN

REACTIONS (6)
  - Renal impairment [Recovered/Resolved]
  - Pyelonephritis [Unknown]
  - Calculus urinary [Unknown]
  - Renal transplant [Unknown]
  - Angina pectoris [Unknown]
  - Coronary artery disease [Unknown]

NARRATIVE: CASE EVENT DATE: 20180101
